FAERS Safety Report 6590089-6 (Version None)
Quarter: 2010Q1

REPORT INFORMATION
  Report Type: 
  Country: None (occurrence: None)
  Receive Date: 20100219
  Receipt Date: 20100216
  Transmission Date: 20100710
  Serious: Yes (Death)
  Sender: FDA-Public Use
  Company Number: PHEH2010US02542

PATIENT
  Sex: Male
  Weight: 96.599 kg

DRUGS (11)
  1. EXJADE [Suspect]
     Indication: MYELODYSPLASTIC SYNDROME
     Dosage: 1500 MG DAILY
     Route: 048
     Dates: start: 20091012
  2. EXJADE [Suspect]
     Indication: B-CELL LYMPHOMA
  3. FEXOFENADINE [Concomitant]
     Dosage: UNK, UNK
     Route: 065
  4. FOSAMAX [Concomitant]
     Dosage: UNK, UNK
     Route: 065
  5. FLUCONAZOLE [Concomitant]
     Dosage: UNK, UNK
     Route: 065
  6. ACYCLOVIR [Concomitant]
     Dosage: UNK, UNK
     Route: 065
  7. PEPCID [Concomitant]
     Dosage: UNK, UNK
     Route: 065
  8. CIPROFLOXACIN [Concomitant]
     Dosage: UNK, UNK
     Route: 065
  9. TOPROL-XL [Concomitant]
     Dosage: UNK, UNK
     Route: 065
  10. CITALOPRAM HYDROBROMIDE [Concomitant]
     Dosage: UNK, UNK
     Route: 065
  11. CYCLOBENZAPRINE [Concomitant]
     Dosage: UNK, UNK
     Route: 065

REACTIONS (1)
  - DEATH [None]
